FAERS Safety Report 25117429 (Version 1)
Quarter: 2025Q1

REPORT INFORMATION
  Report Type: Report from Study
  Country: CA (occurrence: None)
  Receive Date: 20250325
  Receipt Date: 20250325
  Transmission Date: 20250408
  Serious: Yes (Other)
  Sender: ORION
  Company Number: CA-PFIZER INC-202500017507

PATIENT
  Age: 80 Year
  Sex: Female

DRUGS (13)
  1. METHOTREXATE [Suspect]
     Active Substance: METHOTREXATE
     Indication: Product used for unknown indication
  2. ERELZI [Suspect]
     Active Substance: ETANERCEPT-SZZS
     Indication: Rheumatoid arthritis
  3. ERELZI [Suspect]
     Active Substance: ETANERCEPT-SZZS
  4. ERELZI [Suspect]
     Active Substance: ETANERCEPT-SZZS
  5. ERELZI [Suspect]
     Active Substance: ETANERCEPT-SZZS
  6. ERELZI [Suspect]
     Active Substance: ETANERCEPT-SZZS
  7. ERELZI [Suspect]
     Active Substance: ETANERCEPT-SZZS
  8. ERELZI [Suspect]
     Active Substance: ETANERCEPT-SZZS
  9. ERELZI [Suspect]
     Active Substance: ETANERCEPT-SZZS
  10. ERELZI [Suspect]
     Active Substance: ETANERCEPT-SZZS
  11. ERELZI [Suspect]
     Active Substance: ETANERCEPT-SZZS
  12. ERELZI [Suspect]
     Active Substance: ETANERCEPT-SZZS
  13. ERELZI [Suspect]
     Active Substance: ETANERCEPT-SZZS

REACTIONS (12)
  - Drug ineffective [Unknown]
  - Product dose omission issue [Unknown]
  - Abscess limb [Unknown]
  - Feeling hot [Unknown]
  - Localised infection [Unknown]
  - Malaise [Unknown]
  - Fine motor skill dysfunction [Unknown]
  - Musculoskeletal stiffness [Unknown]
  - Nodule [Unknown]
  - Peripheral swelling [Unknown]
  - Limb injury [Unknown]
  - Inappropriate schedule of product administration [Unknown]
